FAERS Safety Report 10449916 (Version 3)
Quarter: 2014Q4

REPORT INFORMATION
  Report Type: Spontaneous
  Country: US (occurrence: US)
  Receive Date: 20140912
  Receipt Date: 20141211
  Transmission Date: 20150528
  Serious: No
  Sender: FDA-Public Use
  Company Number: US-INCYTE CORPORATION-2014IN001942

PATIENT
  Sex: Female
  Weight: 83.9 kg

DRUGS (15)
  1. PLAQUENIL [Concomitant]
     Active Substance: HYDROXYCHLOROQUINE SULFATE
  2. HYDROXYUREA. [Concomitant]
     Active Substance: HYDROXYUREA
     Dosage: DEPEND ON COUNTS
  3. MULTIVITAMIN                       /00097801/ [Concomitant]
     Active Substance: VITAMINS
  4. B COMPLEX                          /00212701/ [Concomitant]
  5. CALCIUM [Concomitant]
     Active Substance: CALCIUM
  6. GLUCOSAMINE [Concomitant]
     Active Substance: GLUCOSAMINE
  7. COQ10                              /00517201/ [Concomitant]
  8. METHOTREXATE [Concomitant]
     Active Substance: METHOTREXATE
  9. JAKAFI [Suspect]
     Active Substance: RUXOLITINIB
     Indication: MYELOFIBROSIS
     Dosage: 10 MG, BID
     Route: 048
     Dates: start: 20140505
  10. BABY ASPIRIN [Concomitant]
     Active Substance: ASPIRIN
  11. VITAMIN D                          /00107901/ [Concomitant]
     Active Substance: ERGOCALCIFEROL
  12. ANAGRELIDE [Concomitant]
     Active Substance: ANAGRELIDE
  13. FISH OIL [Concomitant]
     Active Substance: FISH OIL
  14. FOLIC ACID. [Concomitant]
     Active Substance: FOLIC ACID
  15. LASIX [Concomitant]
     Active Substance: FUROSEMIDE

REACTIONS (4)
  - Anaemia [Unknown]
  - Platelet count decreased [Unknown]
  - Muscle spasms [Unknown]
  - Fatigue [Unknown]
